FAERS Safety Report 9704892 (Version 1)
Quarter: 2013Q4

REPORT INFORMATION
  Report Type: Not Available
  Country: US (occurrence: US)
  Receive Date: 20131122
  Receipt Date: 20131122
  Transmission Date: 20140711
  Serious: No
  Sender: FDA-Public Use
  Company Number: US-AMARIN PHARMA, INC.-2013AMR000073

PATIENT
  Sex: Female

DRUGS (3)
  1. VASCEPA [Suspect]
     Indication: PRODUCT USED FOR UNKNOWN INDICATION
     Route: 065
     Dates: start: 20130906, end: 20130909
  2. ANTIHYPERTENSIVES [Concomitant]
     Indication: HYPERTENSION
     Route: 065
  3. DIURETICS [Concomitant]
     Indication: PRODUCT USED FOR UNKNOWN INDICATION
     Route: 065
     Dates: start: 20130906, end: 20130927

REACTIONS (9)
  - Influenza like illness [Recovered/Resolved]
  - Pain in extremity [Recovered/Resolved with Sequelae]
  - Spinal pain [Recovering/Resolving]
  - Back pain [Unknown]
  - Neck pain [Recovered/Resolved]
  - Burning sensation [Recovering/Resolving]
  - Dysmenorrhoea [Recovered/Resolved]
  - Change of bowel habit [Recovering/Resolving]
  - Constipation [Recovered/Resolved]
